FAERS Safety Report 7925788-4 (Version None)
Quarter: 2011Q4

REPORT INFORMATION
  Report Type: 
  Country: None (occurrence: None)
  Receive Date: 20111118
  Receipt Date: 20110412
  Transmission Date: 20120403
  Serious: No
  Sender: FDA-Public Use
  Company Number: US-AMGEN-USASP2011013084

PATIENT
  Age: 58 Year
  Sex: Female

DRUGS (2)
  1. ENBREL [Suspect]
     Indication: RHEUMATOID ARTHRITIS
     Dosage: 50 MG, QWK
     Dates: start: 20070101
  2. ENBREL [Suspect]
     Indication: FIBROMYALGIA

REACTIONS (8)
  - GENITAL INFECTION BACTERIAL [None]
  - INJECTION SITE PAIN [None]
  - ARTHRALGIA [None]
  - GENITAL INFECTION FUNGAL [None]
  - MUSCULOSKELETAL STIFFNESS [None]
  - FEELING ABNORMAL [None]
  - MYALGIA [None]
  - HAND DEFORMITY [None]
